FAERS Safety Report 15542459 (Version 1)
Quarter: 2018Q4

REPORT INFORMATION
  Report Type: Spontaneous
  Country: US (occurrence: US)
  Receive Date: 20181023
  Receipt Date: 20181023
  Transmission Date: 20190205
  Serious: No
  Sender: FDA-Public Use
  Company Number: US-MILLICENT HOLDINGS LTD.-MILL20180587

PATIENT
  Age: 58 Year
  Sex: Female

DRUGS (2)
  1. FEMRING [Suspect]
     Active Substance: ESTRADIOL ACETATE
     Dosage: UNKNOWN
     Route: 067
     Dates: start: 2013
  2. FEMRING [Suspect]
     Active Substance: ESTRADIOL ACETATE
     Indication: MENOPAUSAL SYMPTOMS
     Dosage: UNKNOWN
     Route: 067
     Dates: start: 20180902

REACTIONS (7)
  - Headache [Not Recovered/Not Resolved]
  - Nausea [Not Recovered/Not Resolved]
  - Hot flush [Not Recovered/Not Resolved]
  - Hormone level abnormal [Not Recovered/Not Resolved]
  - Drug ineffective [Not Recovered/Not Resolved]
  - Dizziness [Not Recovered/Not Resolved]
  - Vision blurred [Not Recovered/Not Resolved]

NARRATIVE: CASE EVENT DATE: 201809
